FAERS Safety Report 6879434-1 (Version None)
Quarter: 2010Q3

REPORT INFORMATION
  Report Type: 
  Country: None (occurrence: None)
  Receive Date: 20100728
  Receipt Date: 20100721
  Transmission Date: 20110219
  Serious: Yes (Life-Threatening, Hospitalization, Other)
  Sender: FDA-Public Use
  Company Number: PHHY2010US31633

PATIENT
  Sex: Female

DRUGS (12)
  1. RECLAST [Suspect]
     Indication: OSTEOPOROSIS
     Dosage: ONCE
     Route: 042
     Dates: start: 20090922
  2. TRAMADOL HYDROCHLORIDE [Concomitant]
     Indication: BACK PAIN
     Dosage: 50 MG/DAY
     Route: 048
     Dates: start: 20050101
  3. COUMADIN [Concomitant]
     Indication: ATRIAL FIBRILLATION
     Dosage: 5 MG/DAY
     Route: 048
     Dates: start: 20070101
  4. LIPITOR [Concomitant]
     Indication: HYPERLIPIDAEMIA
     Dosage: 40 MG/DAY
     Route: 048
     Dates: start: 20070101
  5. BENAZEPRIL HYDROCHLORIDE [Concomitant]
  6. LANOXIN [Concomitant]
     Indication: ATRIAL FIBRILLATION
     Dosage: 0.125 MG/DAY
     Route: 048
     Dates: start: 20070101
  7. HYDROCHLORIDE [Concomitant]
  8. CALCIUM WITH VITAMIN D [Concomitant]
  9. NEXIUM [Concomitant]
     Indication: GASTROOESOPHAGEAL REFLUX DISEASE
     Dosage: 40 MG/DAY
     Route: 048
     Dates: start: 20050101
  10. METOPROLOL TARTRATE [Concomitant]
     Indication: HYPERTENSION
     Dosage: 75 MG/DAY
     Route: 048
     Dates: start: 20070101
  11. LORAZEPAM [Concomitant]
  12. HYDROCHLOROTHIAZIDE [Concomitant]
     Indication: HYPERTENSION
     Dosage: 12.5 MG/DAY
     Route: 048
     Dates: start: 20050101

REACTIONS (13)
  - ABASIA [None]
  - APHAGIA [None]
  - ARTERIAL THROMBOSIS LIMB [None]
  - FASCIECTOMY [None]
  - FATIGUE [None]
  - FEELING ABNORMAL [None]
  - FEMORAL ARTERY OCCLUSION [None]
  - MUSCLE SPASMS [None]
  - OEDEMA PERIPHERAL [None]
  - PAIN IN EXTREMITY [None]
  - PEDAL PULSE DECREASED [None]
  - TENDERNESS [None]
  - VOMITING [None]
